FAERS Safety Report 13001475 (Version 1)
Quarter: 2016Q4

REPORT INFORMATION
  Report Type: Spontaneous
  Country: US (occurrence: US)
  Receive Date: 20161203
  Receipt Date: 20161203
  Transmission Date: 20170207
  Serious: Yes (Death, Hospitalization)
  Sender: FDA-Public Use
  Company Number: None

PATIENT
  Age: 50 Year
  Sex: Male
  Weight: 70 kg

DRUGS (6)
  1. ETOPOSIDE (VP-16) [Suspect]
     Active Substance: ETOPOSIDE
     Dates: end: 20161113
  2. PREDNISONE. [Suspect]
     Active Substance: PREDNISONE
     Dates: end: 20161113
  3. VINCRISTINE SULFATE. [Suspect]
     Active Substance: VINCRISTINE SULFATE
     Dates: end: 20161113
  4. CYCLOPHOSPHAMIDE. [Suspect]
     Active Substance: CYCLOPHOSPHAMIDE
     Dates: end: 20161114
  5. DOXORUBICIN HYDROCHLORIDE. [Suspect]
     Active Substance: DOXORUBICIN HYDROCHLORIDE
     Dates: end: 20161113
  6. RITUXIMAB (MOAB C2B8 ANTI CD20, CHIMERIC) [Suspect]
     Active Substance: RITUXIMAB
     Dates: end: 20161109

REACTIONS (10)
  - Acute respiratory distress syndrome [None]
  - Acute respiratory failure [None]
  - Pulmonary mass [None]
  - Sepsis [None]
  - Hypotension [None]
  - Hypercapnia [None]
  - Hyperbilirubinaemia [None]
  - Candida infection [None]
  - Aspergillus test [None]
  - Respiratory acidosis [None]

NARRATIVE: CASE EVENT DATE: 20161124
